FAERS Safety Report 7283277-7 (Version None)
Quarter: 2011Q1

REPORT INFORMATION
  Report Type: 
  Country: None (occurrence: None)
  Receive Date: 20110209
  Receipt Date: 20110207
  Transmission Date: 20110831
  Serious: Yes (Other)
  Sender: FDA-Public Use
  Company Number: JP-ROCHE-758021

PATIENT
  Age: 82 Year
  Sex: Male

DRUGS (2)
  1. DENOSINE IV [Suspect]
     Route: 041
  2. NEORAL [Concomitant]
     Indication: ENCEPHALITIS
     Route: 048

REACTIONS (1)
  - DEPRESSED LEVEL OF CONSCIOUSNESS [None]
